FAERS Safety Report 8849111 (Version 1)
Quarter: 2012Q4

REPORT INFORMATION
  Report Type: 
  Country: US (occurrence: US)
  Receive Date: 20121019
  Receipt Date: 20121019
  Transmission Date: 20130627
  Serious: Yes (Other)
  Sender: FDA-Public Use
  Company Number: US-BAYER-2012-106412

PATIENT
  Age: 48 Year
  Sex: Female

DRUGS (3)
  1. YASMIN [Suspect]
     Indication: MENORRHAGIA
  2. CLARINEX [DESLORATADINE] [Concomitant]
  3. LISINOPRIL [Concomitant]
     Dosage: 5 mg, daily

REACTIONS (2)
  - Deep vein thrombosis [Recovering/Resolving]
  - Thrombophlebitis superficial [Recovering/Resolving]
